FAERS Safety Report 25481611 (Version 2)
Quarter: 2025Q3

REPORT INFORMATION
  Report Type: Spontaneous
  Country: US (occurrence: US)
  Receive Date: 20250626
  Receipt Date: 20250701
  Transmission Date: 20251021
  Serious: No
  Sender: BRISTOL-MYERS SQUIBB COMPANY
  Company Number: US-BRISTOL-MYERS SQUIBB COMPANY-2025-090695

PATIENT
  Age: 89 Year
  Sex: Male

DRUGS (1)
  1. IDHIFA [Suspect]
     Active Substance: ENASIDENIB MESYLATE
     Indication: Product used for unknown indication
     Dosage: DOSE : 100MG;     FREQ : TAKE 1 TABLET BY MOUTH ONCE DAILY
     Route: 048
     Dates: end: 20250627

REACTIONS (1)
  - Platelet count decreased [Unknown]
